FAERS Safety Report 7382107-2 (Version None)
Quarter: 2011Q1

REPORT INFORMATION
  Report Type: 
  Country: None (occurrence: None)
  Receive Date: 20110329
  Receipt Date: 20110315
  Transmission Date: 20110831
  Serious: Yes (Hospitalization, Other)
  Sender: FDA-Public Use
  Company Number: PHEH2009US02429

PATIENT
  Sex: Female
  Weight: 125 kg

DRUGS (53)
  1. TUSSIONEX [Concomitant]
  2. ZOFRAN [Concomitant]
     Dosage: 4 MG / Q4H PRN
  3. MINOCIN [Concomitant]
  4. ACTIVELLA [Concomitant]
  5. CYCLOBENZAPRINE [Concomitant]
     Dosage: 10 MG, EVERY 8 HOURS AS NEEDED
     Route: 048
  6. ZOMETA [Suspect]
     Indication: NEOPLASM MALIGNANT
     Dosage: 3.5 MG, QMO
     Dates: start: 20070515, end: 20071218
  7. PAXIL [Concomitant]
  8. CLINDAMYCIN [Concomitant]
  9. MEGACE [Concomitant]
  10. PENICILLIN V POTASSIUM [Concomitant]
     Dosage: 500 MG / 4 X DAILY
     Route: 048
  11. EMLA [Concomitant]
  12. VICODIN [Concomitant]
  13. RADIATION [Concomitant]
  14. AVELOX [Concomitant]
  15. LOMOTIL [Concomitant]
  16. NOVOLOG [Concomitant]
     Dosage: UNK
  17. XANAX [Concomitant]
     Dosage: 0.5 MG / AS NEEDED
  18. FLUDROCORTISONE ACETATE [Concomitant]
     Dosage: 0.1 MG / DAILY
     Route: 048
  19. MIRTAZAPINE [Concomitant]
     Dosage: 15 MG / DAILY
     Route: 048
  20. ALPRAZOLAM [Concomitant]
     Dosage: .25 MG, EVERY 8 HOURS AS NEEDED
     Route: 048
  21. COUMADIN [Concomitant]
  22. XELODA [Concomitant]
  23. QUESTRAN [Concomitant]
  24. MYCOSTATIN [Concomitant]
  25. DIFLUCAN [Concomitant]
  26. TYKERB [Concomitant]
     Dosage: 1250 MG/ DAILY
  27. WARFARIN [Concomitant]
     Dosage: 1 MG / DAILY
  28. RADIATION THERAPY [Concomitant]
     Dosage: UNK
     Dates: start: 20070601
  29. PERIDEX [Concomitant]
  30. ATARAX [Concomitant]
  31. DEXAMETHASONE [Concomitant]
     Dosage: UNK
  32. AMOXICILLIN [Concomitant]
  33. KEFLEX [Concomitant]
     Dosage: 500 BID
  34. ZOLPIDEM [Concomitant]
     Dosage: 5 MG, AT THE HOUR OF BEDTIME AS NEEDED
     Route: 048
  35. CHEMOTHERAPEUTICS NOS [Concomitant]
  36. FLEXERIL [Concomitant]
  37. ACETAMINOPHEN AND HYDROCODONE BITARTRATE [Concomitant]
     Dosage: UNK / Q6H PRN
  38. PHENERGAN [Concomitant]
     Dosage: 25 MG / Q6H PRN
  39. LIDOCAINE HYDROCHLORIDE [Concomitant]
     Dosage: 50 ML
  40. FLUCONAZOLE [Concomitant]
     Dosage: 100 MG / DAILY
     Route: 048
  41. TAXOTERE [Concomitant]
     Dosage: UNK
     Dates: start: 20070515
  42. HERCEPTIN [Concomitant]
  43. SENSORCAINE W/EPINEPHRINE BITARTRATE [Concomitant]
     Dosage: 30 ML
  44. MYCELEX [Concomitant]
  45. DARVOCET-N 50 [Concomitant]
  46. INSULIN [Concomitant]
     Indication: TYPE 1 DIABETES MELLITUS
  47. REGLAN [Concomitant]
  48. WELLBUTRIN [Concomitant]
  49. DECADRON [Concomitant]
  50. ULTRAM [Concomitant]
     Dosage: 50 MG / Q4H PRN
  51. BENADRYL ^ACHE^ [Concomitant]
     Dosage: UNK
  52. HERCEPTIN [Concomitant]
  53. HYDROCODONE BITARTRATE [Concomitant]
     Dosage: 5-325 MG (2 TABLETS), EVERY 6 HOURS AS NEEDED
     Route: 048

REACTIONS (100)
  - LEFT VENTRICULAR DYSFUNCTION [None]
  - DISCOMFORT [None]
  - SCAR [None]
  - METASTASES TO CENTRAL NERVOUS SYSTEM [None]
  - GAIT DISTURBANCE [None]
  - DEHYDRATION [None]
  - BONE DENSITY DECREASED [None]
  - OSTEOPOROSIS [None]
  - NEOPLASM RECURRENCE [None]
  - RENAL FAILURE [None]
  - DELIRIUM [None]
  - HIP FRACTURE [None]
  - BRONCHITIS [None]
  - BACK PAIN [None]
  - HYPOPHAGIA [None]
  - TOOTH LOSS [None]
  - BONE DISORDER [None]
  - ATRIAL TACHYCARDIA [None]
  - CACHEXIA [None]
  - PAIN [None]
  - COUGH [None]
  - SENSITIVITY OF TEETH [None]
  - PURULENT DISCHARGE [None]
  - DIABETIC KETOACIDOSIS [None]
  - ODYNOPHAGIA [None]
  - FEMUR FRACTURE [None]
  - ATELECTASIS [None]
  - CHRONIC OBSTRUCTIVE PULMONARY DISEASE [None]
  - FATIGUE [None]
  - INJURY [None]
  - LIFE EXPECTANCY SHORTENED [None]
  - FISTULA [None]
  - ANAEMIA [None]
  - NEUROPATHY PERIPHERAL [None]
  - PNEUMONITIS [None]
  - OSTEOARTHRITIS [None]
  - GINGIVAL PAIN [None]
  - DENTAL CARIES [None]
  - OSTEOMYELITIS [None]
  - NAUSEA [None]
  - LUNG NEOPLASM MALIGNANT [None]
  - HYPOKINESIA [None]
  - DIABETIC NEPHROPATHY [None]
  - UPPER-AIRWAY COUGH SYNDROME [None]
  - NASOPHARYNGITIS [None]
  - CONGESTIVE CARDIOMYOPATHY [None]
  - ANHEDONIA [None]
  - EAR CONGESTION [None]
  - BLOOD PRESSURE ABNORMAL [None]
  - HYPOTENSION [None]
  - DENTAL PROSTHESIS USER [None]
  - RIB FRACTURE [None]
  - ACTINOMYCOSIS [None]
  - PAIN IN JAW [None]
  - RETINOPATHY [None]
  - CONSTIPATION [None]
  - EMOTIONAL DISTRESS [None]
  - TOOTH FRACTURE [None]
  - PERIODONTITIS [None]
  - ABDOMINAL PAIN UPPER [None]
  - HEADACHE [None]
  - FALL [None]
  - DIPLOPIA [None]
  - ORAL DISORDER [None]
  - ASTHENIA [None]
  - ARRHYTHMIA [None]
  - DYSPHAGIA [None]
  - PYREXIA [None]
  - HYPOGLYCAEMIA [None]
  - URINARY RETENTION [None]
  - RHINORRHOEA [None]
  - OSTEONECROSIS OF JAW [None]
  - LOOSE TOOTH [None]
  - HYPOAESTHESIA [None]
  - SINUSITIS [None]
  - DIZZINESS [None]
  - METASTASES TO BONE [None]
  - MALNUTRITION [None]
  - TOOTH DISORDER [None]
  - DIVERTICULUM [None]
  - NEOPLASM [None]
  - EDENTULOUS [None]
  - ULCER [None]
  - PULMONARY HYPERTENSION [None]
  - PHYSICAL DISABILITY [None]
  - EATING DISORDER [None]
  - ANXIETY [None]
  - TOOTH INFECTION [None]
  - VISION BLURRED [None]
  - EMPHYSEMA [None]
  - CONVULSION [None]
  - BODY TEMPERATURE INCREASED [None]
  - DIARRHOEA [None]
  - DRY MOUTH [None]
  - CANDIDIASIS [None]
  - OESOPHAGITIS [None]
  - GINGIVAL BLEEDING [None]
  - OEDEMA [None]
  - DYSPNOEA [None]
  - BLOOD PRESSURE INCREASED [None]
